FAERS Safety Report 23108032 (Version 1)
Quarter: 2023Q4

REPORT INFORMATION
  Report Type: Spontaneous
  Country: US (occurrence: US)
  Receive Date: 20231026
  Receipt Date: 20231026
  Transmission Date: 20240109
  Serious: Yes (Death, Life-Threatening, Hospitalization, Other)
  Sender: FDA-Public Use
  Company Number: US-MLMSERVICE-20231005-4585462-1

PATIENT

DRUGS (6)
  1. CEFTRIAXONE [Suspect]
     Active Substance: CEFTRIAXONE\CEFTRIAXONE SODIUM
     Indication: Antibiotic therapy
     Dosage: 2 GRAM, QD
     Route: 065
  2. AUGMENTIN [Concomitant]
     Active Substance: AMOXICILLIN\CLAVULANATE POTASSIUM
     Indication: Antibiotic therapy
     Dosage: UNKNOWN
     Route: 065
  3. CEFEPIME [Concomitant]
     Active Substance: CEFEPIME HYDROCHLORIDE
     Indication: Antibiotic therapy
     Dosage: UNKNOWN
     Route: 065
  4. DAPTOMYCIN [Concomitant]
     Active Substance: DAPTOMYCIN
     Indication: Antibiotic therapy
     Dosage: 8 MILLIGRAM/KILOGRAM, QD
     Route: 065
  5. DOXYCYCLINE [Concomitant]
     Active Substance: DOXYCYCLINE
     Indication: Antibiotic therapy
     Dosage: UNKNOWN
     Route: 065
  6. VANCOMYCIN [Concomitant]
     Active Substance: VANCOMYCIN
     Indication: Antibiotic therapy
     Dosage: UNKNOWN
     Route: 065

REACTIONS (6)
  - Haemolytic anaemia [Fatal]
  - Disseminated intravascular coagulation [Fatal]
  - Shock [Fatal]
  - Metabolic acidosis [Fatal]
  - Acute respiratory failure [Fatal]
  - Acute kidney injury [Fatal]
